FAERS Safety Report 6389719-3 (Version None)
Quarter: 2009Q4

REPORT INFORMATION
  Report Type: 
  Country: None (occurrence: None)
  Receive Date: 20091002
  Receipt Date: 20091002
  Transmission Date: 20100525
  Serious: Yes (Death, Hospitalization)
  Sender: FDA-Public Use
  Company Number: None

PATIENT
  Sex: Male
  Weight: 80.9 kg

DRUGS (2)
  1. CETUXIMAB; 50 MG BRISTOL-MYERS SQUIBB COMPANY [Suspect]
     Indication: BLADDER CANCER
     Dosage: 400 MG/M2 250 MG/M2 LOT INFUS WEEKLY IV
     Route: 042
     Dates: start: 20090708, end: 20090911
  2. PACLITAXEL [Suspect]
     Indication: BLADDER CANCER
     Dosage: 80-70-60MG/M2 WEEKLY IV
     Route: 042
     Dates: start: 20090708, end: 20090812

REACTIONS (10)
  - ANAEMIA [None]
  - BLOOD CREATININE INCREASED [None]
  - FALL [None]
  - FATIGUE [None]
  - GENERAL PHYSICAL HEALTH DETERIORATION [None]
  - HEPATIC FAILURE [None]
  - MALIGNANT NEOPLASM PROGRESSION [None]
  - METASTASES TO LIVER [None]
  - NEUTROPENIA [None]
  - RASH [None]
